FAERS Safety Report 9398138 (Version 1)
Quarter: 2013Q3

REPORT INFORMATION
  Report Type: Spontaneous
  Country: US (occurrence: US)
  Receive Date: 20130712
  Receipt Date: 20130712
  Transmission Date: 20140515
  Serious: No
  Sender: FDA-Public Use
  Company Number: US-GLAXOSMITHKLINE-A0987210A

PATIENT
  Age: 42 Year
  Sex: Female

DRUGS (2)
  1. FLOVENT [Suspect]
     Indication: EOSINOPHILIC OESOPHAGITIS
     Dosage: 2PUFF TWICE PER DAY
     Route: 048
     Dates: start: 20120718, end: 20120723
  2. NO CONCURRENT MEDICATION [Concomitant]

REACTIONS (5)
  - Hypersensitivity [Not Recovered/Not Resolved]
  - Eye pruritus [Unknown]
  - Eye swelling [Unknown]
  - Urticaria [Unknown]
  - Drug administration error [Unknown]
